FAERS Safety Report 7163061-5 (Version None)
Quarter: 2010Q4

REPORT INFORMATION
  Report Type: 
  Country: None (occurrence: None)
  Receive Date: 20101215
  Receipt Date: 20100217
  Transmission Date: 20110411
  Serious: Yes (Other)
  Sender: FDA-Public Use
  Company Number: US-PFIZER INC-2010021103

PATIENT
  Sex: Female
  Weight: 70.748 kg

DRUGS (5)
  1. LYRICA [Suspect]
     Indication: PAIN
     Dosage: 75 MG, 2X/DAY
     Route: 048
     Dates: start: 20090101, end: 20100217
  2. PROTONIX [Concomitant]
     Dosage: UNK
     Route: 048
  3. ESTRADIOL ACETATE [Concomitant]
     Dosage: UNK
  4. SYNTHROID [Concomitant]
     Dosage: UNK UG, UNK
     Route: 048
  5. FENTANYL [Concomitant]
     Dosage: UNK UG, UNK
     Route: 048

REACTIONS (8)
  - ARTHRALGIA [None]
  - DEPRESSION [None]
  - DRUG DOSE OMISSION [None]
  - FIBROMYALGIA [None]
  - FRACTURE [None]
  - GAIT DISTURBANCE [None]
  - MUSCULAR WEAKNESS [None]
  - SYSTEMIC LUPUS ERYTHEMATOSUS [None]
